FAERS Safety Report 9347050 (Version 1)
Quarter: 2013Q2

REPORT INFORMATION
  Report Type: Spontaneous
  Country: US (occurrence: US)
  Receive Date: 20130613
  Receipt Date: 20130613
  Transmission Date: 20140414
  Serious: No
  Sender: FDA-Public Use
  Company Number: US-009507513-1306USA002870

PATIENT
  Age: 56 Year
  Sex: Male

DRUGS (4)
  1. VICTRELIS [Suspect]
     Indication: HEPATITIS C
     Dosage: UNK
     Route: 048
     Dates: start: 201202
  2. VICTRELIS [Suspect]
     Indication: HEPATIC CIRRHOSIS
  3. PEG-INTRON [Suspect]
     Indication: HEPATIC CIRRHOSIS
     Dosage: UNK
     Dates: start: 201202
  4. REBETOL [Suspect]
     Indication: HEPATIC CIRRHOSIS
     Dosage: UNK
     Route: 048
     Dates: start: 201202

REACTIONS (2)
  - Bursitis [Recovered/Resolved]
  - Cellulitis [Recovered/Resolved]
